FAERS Safety Report 7515982-9 (Version None)
Quarter: 2011Q2

REPORT INFORMATION
  Report Type: 
  Country: None (occurrence: None)
  Receive Date: 20110601
  Receipt Date: 20101227
  Transmission Date: 20111010
  Serious: Yes (Hospitalization, Other)
  Sender: FDA-Public Use
  Company Number: US-BAYER-201033258NA

PATIENT
  Age: 29 Year
  Sex: Female
  Weight: 57 kg

DRUGS (12)
  1. YAZ [Suspect]
     Indication: MENSTRUATION IRREGULAR
     Dosage: UNK UNK, QD
     Route: 048
     Dates: start: 20060101, end: 20090615
  2. YAZ [Suspect]
     Indication: ORAL CONTRACEPTION
  3. UNKNOWN DRUG [Concomitant]
     Indication: ASTHMA
     Dosage: STARTED IN 2007 OR 2008
     Route: 065
  4. NSAID'S [Concomitant]
     Route: 065
  5. CONTRACEPTIVES NOS [Concomitant]
  6. DIURETICS [Concomitant]
     Indication: PRODUCT USED FOR UNKNOWN INDICATION
     Route: 065
     Dates: start: 20060101, end: 20080615
  7. YASMIN [Suspect]
     Indication: DYSMENORRHOEA
  8. YASMIN [Suspect]
     Indication: METRORRHAGIA
  9. NSAID'S [Concomitant]
     Indication: PRODUCT USED FOR UNKNOWN INDICATION
     Route: 065
  10. YASMIN [Suspect]
     Indication: CONTRACEPTION
     Dosage: UNK
     Dates: start: 20030101, end: 20060101
  11. ANTIBIOTICS [Concomitant]
     Indication: PRODUCT USED FOR UNKNOWN INDICATION
     Route: 065
  12. PREVACID [Concomitant]

REACTIONS (8)
  - CHOLECYSTITIS CHRONIC [None]
  - GALLBLADDER DISORDER [None]
  - DEPRESSION [None]
  - NERVOUSNESS [None]
  - EMOTIONAL DISTRESS [None]
  - BILE DUCT STONE [None]
  - PAIN [None]
  - FEAR OF DEATH [None]
